FAERS Safety Report 9916344 (Version 1)
Quarter: 2014Q1

REPORT INFORMATION
  Report Type: Spontaneous
  Country: US (occurrence: None)
  Receive Date: 20140220
  Receipt Date: 20140220
  Transmission Date: 20141002
  Serious: Yes (Life-Threatening, Hospitalization)
  Sender: FDA-Public Use
  Company Number: None

PATIENT
  Age: 60 Year
  Sex: Male
  Weight: 86.18 kg

DRUGS (1)
  1. PROPOXYPHENE [Suspect]
     Indication: BACK DISORDER
     Dates: start: 20130901, end: 20140218

REACTIONS (1)
  - Overdose [None]
